FAERS Safety Report 7228802-7 (Version None)
Quarter: 2011Q1

REPORT INFORMATION
  Report Type: 
  Country: None (occurrence: None)
  Receive Date: 20110117
  Receipt Date: 20070423
  Transmission Date: 20110831
  Serious: No
  Sender: FDA-Public Use
  Company Number: 2007BI009102

PATIENT
  Sex: Female

DRUGS (6)
  1. PROVIGIL [Concomitant]
     Indication: FATIGUE
  2. ZANAFLEX [Concomitant]
     Indication: PAIN
  3. BETASERON [Concomitant]
     Indication: MULTIPLE SCLEROSIS
  4. TYSABRI [Suspect]
     Indication: MULTIPLE SCLEROSIS
     Route: 042
     Dates: start: 20061128, end: 20070124
  5. AVONEX [Concomitant]
     Indication: MULTIPLE SCLEROSIS
     Route: 030
  6. COPAXONE [Concomitant]
     Indication: MULTIPLE SCLEROSIS

REACTIONS (16)
  - STOMATITIS [None]
  - GASTROENTERITIS VIRAL [None]
  - PYREXIA [None]
  - PHARYNGITIS STREPTOCOCCAL [None]
  - FATIGUE [None]
  - UNDERWEIGHT [None]
  - HERPES DERMATITIS [None]
  - VIRAL INFECTION [None]
  - INFECTION [None]
  - COGNITIVE DISORDER [None]
  - LABORATORY TEST ABNORMAL [None]
  - GASTROENTERITIS [None]
  - PAIN [None]
  - VITAMIN D DECREASED [None]
  - HEADACHE [None]
  - INFLUENZA LIKE ILLNESS [None]
